FAERS Safety Report 16327394 (Version 1)
Quarter: 2019Q2

REPORT INFORMATION
  Report Type: Spontaneous
  Country: GB (occurrence: GB)
  Receive Date: 20190517
  Receipt Date: 20190517
  Transmission Date: 20190711
  Serious: Yes (Hospitalization, Other)
  Sender: FDA-Public Use
  Company Number: GB-NAPPMUNDI-GBR-2019-0066512

PATIENT
  Age: 79 Year
  Sex: Female

DRUGS (1)
  1. MORPHINE SULFATE. [Suspect]
     Active Substance: MORPHINE SULFATE
     Indication: BREAKTHROUGH PAIN
     Route: 065

REACTIONS (4)
  - Oesophageal dilatation [Recovered/Resolved]
  - Intestinal dilatation [Recovered/Resolved]
  - Constipation [Recovered/Resolved]
  - Decreased appetite [Unknown]
